FAERS Safety Report 5865204-X (Version None)
Quarter: 2008Q3

REPORT INFORMATION
  Report Type: 
  Country: None (occurrence: None)
  Receive Date: 20080829
  Receipt Date: 20080826
  Transmission Date: 20090109
  Serious: Yes (Disabling)
  Sender: FDA-Public Use
  Company Number: B0530233A

PATIENT
  Age: 94 Year
  Sex: Female
  Weight: 34 kg

DRUGS (5)
  1. ARIXTRA [Suspect]
     Indication: THROMBOSIS PROPHYLAXIS
     Dosage: 1.5MG PER DAY
     Route: 058
     Dates: start: 20080530, end: 20080612
  2. PANSPORIN [Concomitant]
     Indication: INFECTION PROPHYLAXIS
     Dosage: 2G PER DAY
     Route: 065
     Dates: start: 20080529, end: 20080604
  3. FLOMOX [Concomitant]
     Indication: INFECTION PROPHYLAXIS
     Dosage: 900G PER DAY
     Route: 048
     Dates: start: 20080604, end: 20080611
  4. CRAVIT [Concomitant]
     Indication: INFECTION PROPHYLAXIS
     Dosage: 900G PER DAY
     Route: 048
     Dates: start: 20080611, end: 20080616
  5. NORVASC [Concomitant]
     Dosage: 5MG PER DAY
     Route: 048
     Dates: start: 20080527

REACTIONS (6)
  - BLADDER DISORDER [None]
  - DYSURIA [None]
  - HAEMATURIA [None]
  - HAEMORRHAGE URINARY TRACT [None]
  - POLLAKIURIA [None]
  - URINARY RETENTION [None]
